FAERS Safety Report 6810843-2 (Version None)
Quarter: 2010Q2

REPORT INFORMATION
  Report Type: 
  Country: None (occurrence: None)
  Receive Date: 20100630
  Receipt Date: 20080416
  Transmission Date: 20101027
  Serious: No
  Sender: FDA-Public Use
  Company Number: US-PFIZER INC-2008030633

PATIENT
  Sex: Female
  Weight: 65 kg

DRUGS (3)
  1. ESTRING [Suspect]
     Indication: VULVOVAGINAL DRYNESS
     Route: 067
     Dates: start: 20071101, end: 20080401
  2. ESTRING [Suspect]
     Indication: BURNING SENSATION
  3. MONISTAT [Suspect]
     Indication: VULVOVAGINAL PRURITUS
     Route: 067
     Dates: start: 20080301

REACTIONS (3)
  - DRUG INEFFECTIVE [None]
  - VULVOVAGINAL MYCOTIC INFECTION [None]
  - VULVOVAGINAL PRURITUS [None]
